FAERS Safety Report 8948256 (Version 2)
Quarter: 2013Q1

REPORT INFORMATION
  Report Type: Spontaneous
  Country: IE (occurrence: IE)
  Receive Date: 20121206
  Receipt Date: 20130212
  Transmission Date: 20140127
  Serious: Yes (Other)
  Sender: FDA-Public Use
  Company Number: PHFR2012IE003306

PATIENT
  Sex: Female

DRUGS (7)
  1. CLOZARIL [Suspect]
     Indication: SCHIZOPHRENIA
     Dosage: UNK
     Route: 048
     Dates: start: 20111005
  2. CLOZARIL [Suspect]
     Dosage: 350 MG, DAILY
  3. CLOZARIL [Suspect]
     Dosage: 300 MG, DAILY
  4. CLOZARIL [Suspect]
     Dosage: 225 MG, NOCTE
  5. EDRONAX [Suspect]
     Dosage: 4 MG, BID
  6. SERTRALINE [Concomitant]
     Dosage: 100 MG, NOCTE
  7. ZOLPIDEM [Concomitant]
     Dosage: 5 MG, NOCTE

REACTIONS (8)
  - Sedation [Recovering/Resolving]
  - Orthostatic hypotension [Not Recovered/Not Resolved]
  - Influenza like illness [Recovered/Resolved]
  - Myalgia [Recovered/Resolved]
  - Dizziness [Recovered/Resolved]
  - Antipsychotic drug level above therapeutic [Recovered/Resolved]
  - Salivary hypersecretion [Recovered/Resolved]
  - Muscular weakness [Recovered/Resolved]
